FAERS Safety Report 9230009 (Version 2)
Quarter: 2013Q3

REPORT INFORMATION
  Report Type: Spontaneous
  Country: US (occurrence: US)
  Receive Date: 20130415
  Receipt Date: 20130815
  Transmission Date: 20140515
  Serious: Yes (Hospitalization)
  Sender: FDA-Public Use
  Company Number: US-BAYER-2013-044740

PATIENT
  Age: 40 Year
  Sex: Female
  Weight: 60.32 kg

DRUGS (6)
  1. MIRENA [Suspect]
     Indication: CONTRACEPTION
     Dosage: 20 ?G/D, CONT
     Route: 015
     Dates: start: 20070614, end: 20121226
  2. IBUPROFEN [Concomitant]
  3. BUSPAR [Concomitant]
  4. LYRICA [Concomitant]
  5. FIORICET [Concomitant]
  6. PRENATAL VITAMINS [Concomitant]

REACTIONS (4)
  - Device dislocation [Recovered/Resolved]
  - Device dislocation [Recovered/Resolved]
  - Pregnancy with contraceptive device [None]
  - Drug ineffective [None]
